FAERS Safety Report 5678312-3 (Version None)
Quarter: 2008Q1

REPORT INFORMATION
  Report Type: 
  Country: None (occurrence: None)
  Receive Date: 20080320
  Receipt Date: 20080307
  Transmission Date: 20080703
  Serious: Yes (Other)
  Sender: FDA-Public Use
  Company Number: 2008005836

PATIENT
  Age: 51 Year
  Sex: Female

DRUGS (1)
  1. LISTERINE WHITENING PRE-BRUSH RINSE (NO ACTIVE INGREDIENT) [Suspect]
     Indication: DENTAL DISORDER PROPHYLAXIS
     Dosage: HALF CAPFUL TWICE A DAY (2 IN 1 D); ORAL
     Route: 047
     Dates: start: 20080223, end: 20080225

REACTIONS (2)
  - CELLULITIS [None]
  - PAIN IN JAW [None]
